FAERS Safety Report 12780318 (Version 2)
Quarter: 2016Q4

REPORT INFORMATION
  Report Type: Report from Study
  Country: NL (occurrence: NL)
  Receive Date: 20160926
  Receipt Date: 20161009
  Transmission Date: 20170207
  Serious: Yes (Hospitalization, Other)
  Sender: FDA-Public Use
  Company Number: NL-AMGEN-NLDSL2016128370

PATIENT
  Age: 67 Year
  Sex: Female

DRUGS (1)
  1. ARANESP [Suspect]
     Active Substance: DARBEPOETIN ALFA
     Indication: ANAEMIA
     Dosage: 500 MCG (1.0 ML), Q3WK
     Route: 058

REACTIONS (2)
  - Abdominal pain lower [Unknown]
  - Terminal state [Unknown]
